FAERS Safety Report 12585164 (Version 1)
Quarter: 2016Q3

REPORT INFORMATION
  Report Type: Spontaneous
  Country: US (occurrence: US)
  Receive Date: 20160723
  Receipt Date: 20160723
  Transmission Date: 20161109
  Serious: No
  Sender: FDA-Public Use
  Company Number: US-009507513-1607USA006483

PATIENT
  Age: 33 Year
  Sex: Female

DRUGS (1)
  1. GANIRELIX ACETATE INJECTION [Suspect]
     Active Substance: GANIRELIX ACETATE
     Indication: INFERTILITY FEMALE
     Dosage: 250 MICROGRAM, UNK, ONE DOSE
     Route: 058
     Dates: start: 201607, end: 201607

REACTIONS (1)
  - Rubber sensitivity [Unknown]

NARRATIVE: CASE EVENT DATE: 201607
